FAERS Safety Report 5567465-3 (Version None)
Quarter: 2007Q4

REPORT INFORMATION
  Report Type: 
  Country: None (occurrence: None)
  Receive Date: 20071219
  Receipt Date: 20071212
  Transmission Date: 20080405
  Serious: Yes (Hospitalization)
  Sender: FDA-Public Use
  Company Number: US-MERCK-0712USA03819

PATIENT
  Age: 76 Year
  Sex: Female

DRUGS (2)
  1. FOSAMAX [Suspect]
     Indication: OSTEOPOROSIS
     Route: 048
     Dates: start: 20010401
  2. PRED FORTE [Concomitant]
     Route: 065

REACTIONS (3)
  - HEADACHE [None]
  - HYPERHIDROSIS [None]
  - SARCOIDOSIS [None]
